FAERS Safety Report 12595516 (Version 2)
Quarter: 2016Q4

REPORT INFORMATION
  Report Type: Spontaneous
  Country: US (occurrence: US)
  Receive Date: 20160726
  Receipt Date: 20161011
  Transmission Date: 20170207
  Serious: Yes (Other)
  Sender: FDA-Public Use
  Company Number: US-ENDO PHARMACEUTICALS INC.-2016-002739

PATIENT
  Sex: Female
  Weight: 113.95 kg

DRUGS (1)
  1. LISINOPRIL TABLETS [Suspect]
     Active Substance: LISINOPRIL
     Indication: PRODUCT USED FOR UNKNOWN INDICATION
     Route: 065

REACTIONS (3)
  - Loss of consciousness [Unknown]
  - Hand fracture [Unknown]
  - Drug hypersensitivity [Unknown]
